FAERS Safety Report 25864576 (Version 2)
Quarter: 2025Q4

REPORT INFORMATION
  Report Type: Spontaneous
  Country: CA (occurrence: CA)
  Receive Date: 20250930
  Receipt Date: 20251128
  Transmission Date: 20260118
  Serious: Yes (Other)
  Sender: PFIZER
  Company Number: CA-PFIZER INC-PV202500090169

PATIENT
  Age: 44 Year
  Sex: Female
  Weight: 102.3 kg

DRUGS (3)
  1. IXIFI [Suspect]
     Active Substance: INFLIXIMAB-QBTX
     Indication: Rheumatoid arthritis
     Dosage: 306 MG (3MG/KG WEEK) 0,2,6 THEN EVERY 6 WEEKS THEREAFTER
     Route: 042
  2. IXIFI [Suspect]
     Active Substance: INFLIXIMAB-QBTX
     Dosage: 306 MG, EVERY 8 WEEKS
     Route: 042
     Dates: start: 20250910
  3. IXIFI [Suspect]
     Active Substance: INFLIXIMAB-QBTX
     Dosage: 306 MG, EVERY 6 WEEKS
     Route: 042
     Dates: start: 20250924

REACTIONS (5)
  - Chest pain [Unknown]
  - Dyspnoea [Unknown]
  - Back pain [Unknown]
  - Neck pain [Unknown]
  - Off label use [Unknown]

NARRATIVE: CASE EVENT DATE: 20250924
